FAERS Safety Report 8661845 (Version 2)
Quarter: 2018Q4

REPORT INFORMATION
  Report Type: Spontaneous
  Country: FR (occurrence: FR)
  Receive Date: 20120712
  Receipt Date: 20181029
  Transmission Date: 20190205
  Serious: Yes (Hospitalization)
  Sender: FDA-Public Use
  Company Number: FR-JNJFOC-20120701920

PATIENT
  Age: 89 Year
  Sex: Female

DRUGS (3)
  1. RISPERDAL [Suspect]
     Active Substance: RISPERIDONE
     Indication: COGNITIVE DISORDER
     Route: 048
     Dates: end: 20100302
  2. MIANSERIN [Suspect]
     Active Substance: MIANSERIN
     Indication: DEPRESSION
     Route: 048
     Dates: end: 20100302
  3. EQUANIL [Suspect]
     Active Substance: MEPROBAMATE
     Indication: DEPRESSION
     Route: 048
     Dates: end: 20100302

REACTIONS (3)
  - Fall [Unknown]
  - Cognitive disorder [Unknown]
  - Foot fracture [Unknown]

NARRATIVE: CASE EVENT DATE: 200907
